FAERS Safety Report 18163657 (Version 1)
Quarter: 2020Q3

REPORT INFORMATION
  Report Type: Spontaneous
  Country: RU (occurrence: RU)
  Receive Date: 20200818
  Receipt Date: 20200818
  Transmission Date: 20201103
  Serious: Yes (Other)
  Sender: FDA-Public Use
  Company Number: RU-GALDERMA-RU2020037955

PATIENT
  Age: 44 Year
  Sex: Male
  Weight: 87 kg

DRUGS (4)
  1. MIRVASO [Suspect]
     Active Substance: BRIMONIDINE TARTRATE
     Indication: ROSACEA
     Dosage: 0.5%
     Route: 061
     Dates: start: 20200415, end: 20200417
  2. TRIDERM [Concomitant]
     Active Substance: TRIAMCINOLONE ACETONIDE
     Indication: PRODUCT USED FOR UNKNOWN INDICATION
     Route: 061
     Dates: end: 202004
  3. CETAPHIL REDNESS CONTROL MILD CLEANSING FOAM [Suspect]
     Active Substance: COSMETICS
     Indication: PRODUCT USED FOR UNKNOWN INDICATION
     Route: 061
     Dates: start: 20200415
  4. TRIDERM [Concomitant]
     Active Substance: TRIAMCINOLONE ACETONIDE
     Route: 061
     Dates: start: 2020

REACTIONS (3)
  - Rosacea [Unknown]
  - Skin tightness [Unknown]
  - Application site scab [Unknown]

NARRATIVE: CASE EVENT DATE: 20200416
